FAERS Safety Report 6656079-X (Version None)
Quarter: 2010Q1

REPORT INFORMATION
  Report Type: 
  Country: None (occurrence: None)
  Receive Date: 20100329
  Receipt Date: 20100322
  Transmission Date: 20100710
  Serious: Yes (Disabling, Other)
  Sender: FDA-Public Use
  Company Number: A0852199A

PATIENT
  Age: 56 Year
  Sex: Female

DRUGS (8)
  1. LAMICTAL CD [Suspect]
     Indication: BIPOLAR II DISORDER
     Dosage: 160MGD PER DAY
     Route: 048
  2. LORAZEPAM [Concomitant]
  3. SYNTHROID [Concomitant]
  4. CALTRATE [Concomitant]
  5. VITAMIN D [Concomitant]
  6. ASPIRIN [Concomitant]
  7. VITAMIN B-12 [Concomitant]
  8. IUD [Concomitant]

REACTIONS (1)
  - CATARACT [None]
